FAERS Safety Report 8249691-8 (Version None)
Quarter: 2012Q2

REPORT INFORMATION
  Report Type: 
  Country: None (occurrence: None)
  Receive Date: 20120402
  Receipt Date: 20120321
  Transmission Date: 20120825
  Serious: Yes (Other)
  Sender: FDA-Public Use
  Company Number: JP-BRISTOL-MYERS SQUIBB COMPANY-16458838

PATIENT
  Age: 70 Year
  Sex: Female

DRUGS (17)
  1. RINDERON-VG [Concomitant]
     Indication: ACNE
     Dosage: 3 IN 1 AS NECESSARY
     Dates: start: 20120204
  2. HALOPERIDOL [Concomitant]
     Indication: INSOMNIA
     Dosage: TAB
     Route: 048
     Dates: start: 20120205
  3. MENATETRENONE [Concomitant]
     Indication: OSTEOPOROSIS
     Dosage: 1DF:1 CAP
     Route: 048
     Dates: start: 20120216
  4. CISPLATIN [Suspect]
     Indication: GASTRIC CANCER
     Dosage: D8, MOST RECENT ADMINISTRATION 27JAN12
     Route: 042
     Dates: start: 20120125
  5. SENNA [Concomitant]
     Indication: CONSTIPATION
     Dosage: TAB
     Route: 048
     Dates: start: 20120111
  6. AZUNOL [Concomitant]
     Indication: INFECTION PROPHYLAXIS
     Route: 061
     Dates: start: 20120124
  7. HIRUDOID [Concomitant]
     Indication: ACNE
     Dosage: 3 IN 1 AS NECESSARY
     Dates: start: 20120125
  8. BETAMETHASONE [Concomitant]
     Indication: ACNE
  9. ALFACALCIDOL [Concomitant]
     Indication: OSTEOPOROSIS
     Route: 048
     Dates: start: 20120216
  10. GENTAMICIN SULFATE [Concomitant]
     Indication: CONTUSION
     Dosage: 3 IN 1 AS NECESSARY
     Dates: start: 20120221
  11. TS-1 [Suspect]
     Indication: GASTRIC CANCER
     Dosage: CAPS,44 DAYS
     Route: 048
     Dates: start: 20120117, end: 20120301
  12. INDOMETHACIN [Concomitant]
     Indication: CONTUSION
     Dosage: 3 IN 1 AS NECESSARY
     Dates: start: 20120201
  13. MAGNESIUM SULFATE [Concomitant]
     Indication: CONSTIPATION
     Route: 048
     Dates: start: 20120204
  14. CETUXIMAB [Suspect]
     Indication: GASTRIC CANCER
     Dosage: 5MG/ML INTRAVENOUS INFUSION,250MG/M2 ON 25JAN12-STOPPED
     Route: 042
     Dates: start: 20120117
  15. AMLODIPINE [Concomitant]
     Indication: HYPERTENSION
     Route: 048
     Dates: start: 20040101
  16. LANSOPRAZOLE [Concomitant]
     Indication: GASTRIC CANCER
     Dates: start: 20111217
  17. MYSER [Concomitant]
     Indication: ACNE
     Dosage: 3 IN 1 AS NECESSARY
     Dates: start: 20120126

REACTIONS (1)
  - SOFT TISSUE NECROSIS [None]
